FAERS Safety Report 9285434 (Version 1)
Quarter: 2013Q2

REPORT INFORMATION
  Report Type: Spontaneous
  Country: US (occurrence: None)
  Receive Date: 20130510
  Receipt Date: 20130510
  Transmission Date: 20140414
  Serious: Yes (Death, Hospitalization)
  Sender: FDA-Public Use
  Company Number: None

PATIENT
  Age: 61 Year
  Sex: Male
  Weight: 95 kg

DRUGS (6)
  1. COUMADIN [Suspect]
     Indication: ATRIAL FIBRILLATION
     Dosage: 8MG  MON-SAT  PO?CHRONIC
     Route: 048
  2. COUMADIN [Suspect]
     Indication: ATRIAL FIBRILLATION
     Dosage: 12MG  SUNDAY  PO?CHRONIC
     Route: 048
  3. AMLODIPINE [Concomitant]
  4. MVI [Concomitant]
  5. FUROSEMIDE [Concomitant]
  6. METOPROLOL [Concomitant]

REACTIONS (8)
  - Fall [None]
  - Subdural haematoma [None]
  - Convulsion [None]
  - Mental status changes [None]
  - Cerebral infarction [None]
  - Coma [None]
  - Head injury [None]
  - Haemorrhagic stroke [None]
